FAERS Safety Report 11996170 (Version 1)
Quarter: 2016Q1

REPORT INFORMATION
  Report Type: Spontaneous
  Country: US (occurrence: US)
  Receive Date: 20160203
  Receipt Date: 20160203
  Transmission Date: 20160526
  Serious: No
  Sender: FDA-Public Use
  Company Number: US-GALDERMA-US15004457

PATIENT
  Age: 26 Year
  Sex: Female

DRUGS (2)
  1. EPIDUO [Suspect]
     Active Substance: ADAPALENE\BENZOYL PEROXIDE
     Indication: ACNE
     Route: 061
     Dates: start: 201502, end: 20150528
  2. SODIUM SULFACETAMIDE [Concomitant]
     Active Substance: SULFACETAMIDE SODIUM
     Indication: THERAPEUTIC SKIN CARE TOPICAL
     Route: 061

REACTIONS (3)
  - Skin hyperpigmentation [Recovered/Resolved]
  - Drug ineffective [Recovering/Resolving]
  - Skin irritation [Recovering/Resolving]

NARRATIVE: CASE EVENT DATE: 201504
